FAERS Safety Report 4844885-3 (Version None)
Quarter: 2005Q4

REPORT INFORMATION
  Report Type: 
  Country: None (occurrence: None)
  Receive Date: 20051205
  Receipt Date: 20051129
  Transmission Date: 20060501
  Serious: Yes (Hospitalization)
  Sender: FDA-Public Use
  Company Number: US-SANOFI-SYNTHELABO-A03200503958

PATIENT
  Sex: Female

DRUGS (7)
  1. ELOXATIN [Suspect]
     Indication: COLON CANCER STAGE III
     Route: 042
     Dates: start: 20050101, end: 20050101
  2. FLUOROURACIL [Concomitant]
     Route: 042
  3. LEUCOVORIN [Concomitant]
     Route: 042
  4. LIPITOR [Concomitant]
     Dosage: UNK
     Route: 048
  5. CALCIUM W/ VITAMIN D [Concomitant]
     Dosage: UNK
     Route: 048
  6. MULTI-VITAMIN [Concomitant]
     Dosage: UNK
     Route: 048
  7. VITAMIN E [Concomitant]
     Dosage: UNK
     Route: 048

REACTIONS (8)
  - ATRIAL FIBRILLATION [None]
  - COUGH [None]
  - CRYPTOGENIC ORGANIZING PNEUMONIA [None]
  - DRUG INEFFECTIVE [None]
  - HYPERGLYCAEMIA [None]
  - NEUROPATHY [None]
  - PNEUMOTHORAX [None]
  - RESPIRATORY FAILURE [None]
